FAERS Safety Report 7948455-X (Version None)
Quarter: 2011Q4

REPORT INFORMATION
  Report Type: 
  Country: None (occurrence: None)
  Receive Date: 20111130
  Receipt Date: 20111124
  Transmission Date: 20120403
  Serious: Yes (Death, Other)
  Sender: FDA-Public Use
  Company Number: JP-ASTELLAS-2011JP008637

PATIENT
  Age: 57 Year
  Sex: Male

DRUGS (10)
  1. MYCOPHENOLATE MOFETIL [Concomitant]
     Route: 065
  2. GANCICLOVIR [Concomitant]
     Dosage: 500 MG, BID
     Route: 065
  3. STEROID [Concomitant]
     Indication: IMMUNOSUPPRESSION
     Route: 065
  4. PROGRAF [Suspect]
     Indication: IMMUNOSUPPRESSION
     Route: 065
  5. NEUPOGEN [Concomitant]
     Dosage: 250 UG, CONTINUOUS
     Route: 042
  6. FOSCAVIR [Concomitant]
     Route: 065
  7. IMMUNE GLOBULIN NOS [Concomitant]
     Dosage: 5 G, UNKNOWN/D
     Route: 042
  8. METHYLPREDNISOLONE [Concomitant]
     Dosage: 1 G, UNKNOWN/D
     Route: 065
  9. FOSCAVIR [Concomitant]
     Route: 065
  10. STEROID [Concomitant]
     Route: 065

REACTIONS (5)
  - STAPHYLOCOCCAL SEPSIS [None]
  - CYTOMEGALOVIRUS VIRAEMIA [None]
  - ABDOMINAL INFECTION [None]
  - HISTIOCYTOSIS HAEMATOPHAGIC [None]
  - DISSEMINATED INTRAVASCULAR COAGULATION [None]
